FAERS Safety Report 10248619 (Version 1)
Quarter: 2014Q2

REPORT INFORMATION
  Report Type: Spontaneous
  Country: US (occurrence: None)
  Receive Date: 20140617
  Receipt Date: 20140617
  Transmission Date: 20141212
  Serious: Yes (Other)
  Sender: FDA-Public Use
  Company Number: None

PATIENT
  Age: 68 Year
  Sex: Male

DRUGS (2)
  1. RIBAPAK [Suspect]
     Indication: HEPATITIS C
     Route: 048
     Dates: start: 20140214, end: 20140514
  2. PEG-INTRON REDIPEN [Suspect]
     Route: 058
     Dates: start: 20140214, end: 20140514

REACTIONS (1)
  - Psoriasis [None]
